FAERS Safety Report 8895596 (Version 4)
Quarter: 2013Q2

REPORT INFORMATION
  Report Type: Spontaneous
  Country: US (occurrence: US)
  Receive Date: 20121108
  Receipt Date: 20130418
  Transmission Date: 20140414
  Serious: Yes (Other)
  Sender: FDA-Public Use
  Company Number: US-009507513-1210USA013085

PATIENT
  Age: 26 Year
  Sex: Female
  Weight: 88.89 kg

DRUGS (6)
  1. IMPLANON [Suspect]
     Indication: CONTRACEPTION
     Dosage: 68 MG SUBCUTANEOUS INSERTION
     Route: 058
     Dates: start: 20120502
  2. LAMICTAL [Concomitant]
  3. VIMPAT [Concomitant]
  4. TRAZODONE HYDROCHLORIDE [Concomitant]
  5. LORTAB [Concomitant]
  6. TYLENOL [Concomitant]

REACTIONS (11)
  - Convulsion [Not Recovered/Not Resolved]
  - Suicidal ideation [Not Recovered/Not Resolved]
  - Migraine [Not Recovered/Not Resolved]
  - Weight increased [Not Recovered/Not Resolved]
  - Metrorrhagia [Not Recovered/Not Resolved]
  - Depression [Not Recovered/Not Resolved]
  - Medical device complication [Unknown]
  - Medical device complication [Unknown]
  - Anaesthetic complication [Not Recovered/Not Resolved]
  - Implant site scar [Not Recovered/Not Resolved]
  - Sleep disorder [Not Recovered/Not Resolved]
